FAERS Safety Report 8112332-4 (Version None)
Quarter: 2012Q1

REPORT INFORMATION
  Report Type: 
  Country: None (occurrence: None)
  Receive Date: 20120203
  Receipt Date: 20111115
  Transmission Date: 20120608
  Serious: No
  Sender: FDA-Public Use
  Company Number: US-ASTRAZENECA-2011SE56643

PATIENT
  Age: 13018 Day
  Sex: Female

DRUGS (12)
  1. TOPROL-XL [Concomitant]
  2. LOMOTIL [Suspect]
     Dosage: 1-2 TABLET EVERY THREE HOURS
     Route: 048
  3. HYDROCHLORTHIAZIDE/TRIAMTERENE [Concomitant]
  4. VANDETANIB [Suspect]
     Indication: THYROID CANCER
     Route: 048
  5. CHOLESTYRAMINE [Concomitant]
  6. POTASSIUM CHLORIDE [Concomitant]
  7. CALCIUM 500 [Concomitant]
  8. METOPROLOL [Concomitant]
  9. LISINOPRIL [Concomitant]
  10. LEVOTHYROXINE SODIUM [Concomitant]
  11. MAXZIDE [Concomitant]
  12. VITAMIN D [Concomitant]

REACTIONS (13)
  - OROPHARYNGEAL PAIN [None]
  - DIARRHOEA [None]
  - SOMNOLENCE [None]
  - HYPERSOMNIA [None]
  - FATIGUE [None]
  - DEPRESSION [None]
  - ODYNOPHAGIA [None]
  - DRUG INTOLERANCE [None]
  - PALATAL OEDEMA [None]
  - ANXIETY [None]
  - VOMITING [None]
  - CRYING [None]
  - NAUSEA [None]
